FAERS Safety Report 17517069 (Version 1)
Quarter: 2020Q1

REPORT INFORMATION
  Report Type: Spontaneous
  Country: US (occurrence: US)
  Receive Date: 20200307
  Receipt Date: 20200307
  Transmission Date: 20200409
  Serious: Yes (Other)
  Sender: FDA-Public Use
  Company Number: None

PATIENT
  Age: 36 Year
  Sex: Female
  Weight: 108 kg

DRUGS (3)
  1. NIFEDIPINE ER 30MG TABLET [Concomitant]
     Active Substance: NIFEDIPINE
  2. BUPROPRION XL 300MG [Concomitant]
     Active Substance: BUPROPION
  3. DEXTROAMPHET SACCHARAT, AMPHET ASPARTATE, DEXTROAMPHET SULFATE AND AMPHET SULFAT [Suspect]
     Active Substance: AMPHETAMINE ASPARTATE\AMPHETAMINE SULFATE\DEXTROAMPHETAMINE SACCHARATE\DEXTROAMPHETAMINE SULFATE
     Indication: ATTENTION DEFICIT/HYPERACTIVITY DISORDER
     Dosage: ?          QUANTITY:1 TABLET(S);?
     Route: 048
     Dates: start: 20200214, end: 20200307

REACTIONS (5)
  - Drug screen negative [None]
  - Product substitution issue [None]
  - Therapy non-responder [None]
  - Product quality issue [None]
  - Manufacturing issue [None]

NARRATIVE: CASE EVENT DATE: 20200214
